FAERS Safety Report 19521094 (Version 3)
Quarter: 2021Q4

REPORT INFORMATION
  Report Type: Spontaneous
  Country: TH (occurrence: TH)
  Receive Date: 20210712
  Receipt Date: 20211008
  Transmission Date: 20220303
  Serious: Yes (Hospitalization, Other)
  Sender: FDA-Public Use
  Company Number: TH-BOEHRINGERINGELHEIM-2021-BI-114654

PATIENT
  Age: 85 Year
  Sex: Male

DRUGS (2)
  1. OFEV [Suspect]
     Active Substance: NINTEDANIB
     Indication: Idiopathic pulmonary fibrosis
     Dosage: OFEV 100 MG 1 CAPSULE BID ORALLY
     Route: 048
     Dates: start: 20210312, end: 20210705
  2. OFEV [Suspect]
     Active Substance: NINTEDANIB
     Dosage: OFEV 100 MG CAPSULE  VIA NG-TUBE
     Dates: start: 20210715

REACTIONS (2)
  - Cerebrovascular accident [Recovered/Resolved]
  - Feeding tube user [Unknown]

NARRATIVE: CASE EVENT DATE: 20210705
